FAERS Safety Report 6344823-0 (Version None)
Quarter: 2009Q3

REPORT INFORMATION
  Report Type: 
  Country: None (occurrence: None)
  Receive Date: 20090904
  Receipt Date: 20090824
  Transmission Date: 20100115
  Serious: Yes (Hospitalization)
  Sender: FDA-Public Use
  Company Number: 230092J09USA

PATIENT
  Age: 55 Year
  Sex: Female

DRUGS (6)
  1. REBIF [Suspect]
     Indication: MULTIPLE SCLEROSIS
     Dosage: 44 MCG, 3 IN 1 WEEKS, SUBCUTANEOUS
     Route: 058
     Dates: start: 20070912
  2. BENICAR [Concomitant]
  3. ASPIRIN [Concomitant]
  4. MULTIVITAMIN [Concomitant]
  5. ALENDRONATE SODIUM [Concomitant]
  6. CALCIUM (CALCIUM-SANDOZ  /00009901/) [Concomitant]

REACTIONS (3)
  - ATRIAL FIBRILLATION [None]
  - NO THERAPEUTIC RESPONSE [None]
  - SENSATION OF HEAVINESS [None]
